FAERS Safety Report 7548727-7 (Version None)
Quarter: 2011Q2

REPORT INFORMATION
  Report Type: 
  Country: None (occurrence: None)
  Receive Date: 20110615
  Receipt Date: 20110608
  Transmission Date: 20111010
  Serious: Yes (Hospitalization)
  Sender: FDA-Public Use
  Company Number: US-BAXTER-2011BH018034

PATIENT
  Age: 24 Year
  Sex: Male

DRUGS (2)
  1. DIANEAL [Suspect]
     Indication: PERITONEAL DIALYSIS
     Route: 033
  2. DIANEAL [Suspect]
     Indication: PERITONEAL DIALYSIS
     Route: 033

REACTIONS (6)
  - HAEMATOCHEZIA [None]
  - NAUSEA [None]
  - ABDOMINAL PAIN [None]
  - HAEMATEMESIS [None]
  - CONSTIPATION [None]
  - VOMITING [None]
